FAERS Safety Report 16498388 (Version 2)
Quarter: 2019Q3

REPORT INFORMATION
  Report Type: Spontaneous
  Country: US (occurrence: US)
  Receive Date: 20190629
  Receipt Date: 20190718
  Transmission Date: 20191004
  Serious: No
  Sender: FDA-Public Use
  Company Number: PHEH2019US026695

PATIENT
  Sex: Male

DRUGS (2)
  1. TREPROSTINIL. [Suspect]
     Active Substance: TREPROSTINIL
     Indication: PULMONARY ARTERIAL HYPERTENSION
     Dosage: 15 MG/KG, UNK(PER MIN)
     Route: 042
     Dates: start: 201906
  2. TREPROSTINIL. [Suspect]
     Active Substance: TREPROSTINIL
     Dosage: 11.25 MG/KG, UNK(PER MIN)
     Route: 042
     Dates: start: 201906

REACTIONS (7)
  - Dizziness [Unknown]
  - Agitation [Unknown]
  - Pain in jaw [Unknown]
  - Diarrhoea [Unknown]
  - Migraine [Unknown]
  - Vomiting [Unknown]
  - Nausea [Unknown]
